FAERS Safety Report 4862810-6 (Version None)
Quarter: 2005Q4

REPORT INFORMATION
  Report Type: 
  Country: None (occurrence: None)
  Receive Date: 20051219
  Receipt Date: 20051208
  Transmission Date: 20060501
  Serious: Yes (Hospitalization, Other)
  Sender: FDA-Public Use
  Company Number: 2005157997

PATIENT
  Age: 87 Year
  Sex: Female
  Weight: 55.3388 kg

DRUGS (6)
  1. LIPITOR [Suspect]
     Indication: BLOOD CHOLESTEROL INCREASED
     Dosage: 5 MG (10 MG, 1 IN 1 D), ORAL
     Route: 048
  2. WARFARIN (WARFARIN) [Suspect]
     Indication: ILL-DEFINED DISORDER
  3. K-DUR 10 [Concomitant]
  4. NEURONTIN [Concomitant]
  5. AVALIDE [Concomitant]
  6. LANOXIN [Concomitant]

REACTIONS (5)
  - BLINDNESS TRANSIENT [None]
  - EYE DISORDER [None]
  - RENAL EMBOLISM [None]
  - SCIATICA [None]
  - THROMBOSIS [None]
